FAERS Safety Report 8174743-0 (Version None)
Quarter: 2012Q1

REPORT INFORMATION
  Report Type: 
  Country: None (occurrence: None)
  Receive Date: 20120229
  Receipt Date: 20120224
  Transmission Date: 20120608
  Serious: Yes (Other)
  Sender: FDA-Public Use
  Company Number: JP-GLAXOSMITHKLINE-B0784436A

PATIENT
  Age: 77 Year
  Sex: Male

DRUGS (2)
  1. UNSPECIFIED DRUGS [Concomitant]
  2. DUTASTERIDE [Suspect]
     Indication: BENIGN PROSTATIC HYPERPLASIA
     Route: 048

REACTIONS (1)
  - HEPATIC FUNCTION ABNORMAL [None]
